FAERS Safety Report 21599031 (Version 1)
Quarter: 2022Q4

REPORT INFORMATION
  Report Type: Spontaneous
  Country: None (occurrence: CA)
  Receive Date: 20221115
  Receipt Date: 20221115
  Transmission Date: 20230112
  Serious: Yes (Death, Life-Threatening, Hospitalization, Other)
  Sender: FDA-Public Use
  Company Number: CA-B.Braun Medical Inc.-2134897

PATIENT
  Age: 72 Year
  Sex: Female
  Weight: 61.0 kg

DRUGS (15)
  1. POTASSIUM CHLORIDE [Suspect]
     Active Substance: POTASSIUM CHLORIDE
     Indication: Product used for unknown indication
  2. LAMOTRIGINE [Suspect]
     Active Substance: LAMOTRIGINE
  3. BENZTROPINE [Suspect]
     Active Substance: BENZTROPINE
  4. BISACODYL [Suspect]
     Active Substance: BISACODYL
  5. BUPROPION [Suspect]
     Active Substance: BUPROPION
  6. CLONAZEPAM [Suspect]
     Active Substance: CLONAZEPAM
  7. FLOVENT HFA [Suspect]
     Active Substance: FLUTICASONE PROPIONATE
  8. LINACLOTIDE [Suspect]
     Active Substance: LINACLOTIDE
  9. POLYETHYLENE GLYCOL 3350 [Suspect]
     Active Substance: POLYETHYLENE GLYCOL 3350
  10. MELATONIN [Suspect]
     Active Substance: MELATONIN
  11. ONDANSETRON HYDROCHLORIDE [Suspect]
     Active Substance: ONDANSETRON HYDROCHLORIDE
  12. PREMARIN [Suspect]
     Active Substance: ESTROGENS, CONJUGATED
  13. PREVACID [Suspect]
     Active Substance: LANSOPRAZOLE
  14. SODIUM CITRATE\SODIUM LAURYL SULFOACETATE [Suspect]
     Active Substance: SODIUM CITRATE\SODIUM LAURYL SULFOACETATE
  15. SYNTHROID [Suspect]
     Active Substance: LEVOTHYROXINE SODIUM

REACTIONS (2)
  - Cardiac arrest [Fatal]
  - Death [Fatal]
